FAERS Safety Report 14441424 (Version 1)
Quarter: 2018Q1

REPORT INFORMATION
  Report Type: Spontaneous
  Country: US (occurrence: US)
  Receive Date: 20180125
  Receipt Date: 20180125
  Transmission Date: 20180509
  Serious: Yes (Hospitalization, Other)
  Sender: FDA-Public Use
  Company Number: US-DSJP-DSU-2017-138076

PATIENT

DRUGS (1)
  1. BENICAR [Suspect]
     Active Substance: OLMESARTAN MEDOXOMIL
     Indication: PRODUCT USED FOR UNKNOWN INDICATION
     Dosage: 40 MG, QD
     Route: 048
     Dates: start: 20110829, end: 20120723

REACTIONS (5)
  - Gastrointestinal haemorrhage [Unknown]
  - Proctitis [Unknown]
  - Haemorrhoids [Unknown]
  - Diverticulitis [Unknown]
  - Sprue-like enteropathy [Recovered/Resolved]

NARRATIVE: CASE EVENT DATE: 20120716
